FAERS Safety Report 9581847 (Version 1)
Quarter: 2013Q4

REPORT INFORMATION
  Report Type: Spontaneous
  Country: KR (occurrence: KR)
  Receive Date: 20131002
  Receipt Date: 20131002
  Transmission Date: 20140711
  Serious: Yes (Disabling)
  Sender: FDA-Public Use
  Company Number: CHNY2013KR002150

PATIENT
  Sex: Female

DRUGS (2)
  1. OTRIVIN [Suspect]
     Indication: NASAL CONGESTION
     Dosage: UNK, UNK
     Route: 045
  2. ANTI ALLERGIC AGENTS [Concomitant]
     Dosage: UNK, UNK

REACTIONS (2)
  - Activities of daily living impaired [Unknown]
  - Dizziness [Unknown]
